FAERS Safety Report 24824965 (Version 4)
Quarter: 2025Q2

REPORT INFORMATION
  Report Type: Spontaneous
  Country: JP (occurrence: JP)
  Receive Date: 20250109
  Receipt Date: 20250620
  Transmission Date: 20250716
  Serious: Yes (Hospitalization, Other)
  Sender: TAKEDA
  Company Number: JP-TAKEDA-2024TUS054570

PATIENT
  Age: 55 Year
  Sex: Female

DRUGS (15)
  1. LIALDA [Suspect]
     Active Substance: MESALAMINE
     Indication: Pulmonary arterial hypertension
  2. OFEV [Suspect]
     Active Substance: NINTEDANIB
     Indication: Product used for unknown indication
  3. TREPROSTINIL [Suspect]
     Active Substance: TREPROSTINIL
     Indication: Pulmonary arterial hypertension
     Dosage: 54 MICROGRAM, Q6HR
     Dates: start: 20240304, end: 20241230
  4. TREPROSTINIL [Suspect]
     Active Substance: TREPROSTINIL
     Dosage: 54 MICROGRAM, Q8HR
  5. TREPROSTINIL [Suspect]
     Active Substance: TREPROSTINIL
     Dosage: 54 MICROGRAM, Q6HR
  6. OPSUMIT [Concomitant]
     Active Substance: MACITENTAN
  7. CANDESARTAN [Concomitant]
     Active Substance: CANDESARTAN
  8. ADCIRCA [Concomitant]
     Active Substance: TADALAFIL
  9. AZOSEMIDE [Concomitant]
     Active Substance: AZOSEMIDE
  10. AMLODIPINE [Concomitant]
     Active Substance: AMLODIPINE BESYLATE
  11. FERROUS SULFATE [Concomitant]
     Active Substance: FERROUS SULFATE
  12. MIYA-BM [Concomitant]
     Active Substance: CLOSTRIDIUM BUTYRICUM SPORES STRAIN M-55
  13. LANSOPRAZOLE [Concomitant]
     Active Substance: LANSOPRAZOLE
  14. RISEDRONATE SODIUM [Concomitant]
     Active Substance: RISEDRONATE SODIUM
  15. CALONAL [Concomitant]
     Active Substance: ACETAMINOPHEN

REACTIONS (4)
  - Pneumothorax [Recovered/Resolved]
  - Cough [Unknown]
  - Chest pain [Unknown]
  - Diarrhoea [Unknown]

NARRATIVE: CASE EVENT DATE: 20241230
